FAERS Safety Report 5832253-7 (Version None)
Quarter: 2008Q3

REPORT INFORMATION
  Report Type: 
  Country: None (occurrence: None)
  Receive Date: 20080804
  Receipt Date: 20080801
  Transmission Date: 20090109
  Serious: Yes (Other)
  Sender: FDA-Public Use
  Company Number: A0724459A

PATIENT
  Sex: Female
  Weight: 79.8 kg

DRUGS (1)
  1. ALLI [Suspect]
     Route: 048
     Dates: start: 20080329

REACTIONS (12)
  - DRUG INEFFECTIVE [None]
  - FLUID RETENTION [None]
  - FOOD CRAVING [None]
  - HYPERPHAGIA [None]
  - HYPOMETABOLISM [None]
  - JOINT DISLOCATION [None]
  - PHOTOSENSITIVITY REACTION [None]
  - POLYDIPSIA [None]
  - PREMENSTRUAL SYNDROME [None]
  - RECTAL DISCHARGE [None]
  - SALT CRAVING [None]
  - WEIGHT INCREASED [None]
